FAERS Safety Report 8107342-7 (Version None)
Quarter: 2012Q1

REPORT INFORMATION
  Report Type: 
  Country: None (occurrence: None)
  Receive Date: 20120202
  Receipt Date: 20120127
  Transmission Date: 20120608
  Serious: Yes (Hospitalization)
  Sender: FDA-Public Use
  Company Number: JP-B.I. PHARMACEUTICALS,INC./RIDGEFIELD-2011-EU-00792GD

PATIENT
  Sex: Male
  Weight: 66 kg

DRUGS (9)
  1. DABIGATRAN [Suspect]
     Indication: ATRIAL FIBRILLATION
     Dosage: 300 MG
     Route: 048
     Dates: start: 20110505, end: 20110516
  2. LASIX [Concomitant]
     Dosage: 40 MG
     Route: 065
  3. LIPITOR [Concomitant]
     Indication: HYPERLIPIDAEMIA
     Dosage: 10 MG
     Route: 065
  4. ALDACTONE [Concomitant]
     Dosage: 50 MG
     Route: 065
  5. PAXIL [Concomitant]
     Indication: DEPRESSION
     Dosage: 20 MG
     Route: 065
  6. DIGOXIN [Concomitant]
     Indication: ATRIAL FIBRILLATION
     Dosage: 0.125 MG
     Route: 065
  7. ENALAPRIL MALEATE [Concomitant]
     Dosage: 5 MG
     Route: 065
  8. NEO-MERCAZOLE TAB [Concomitant]
     Indication: HYPERTHYROIDISM
     Dosage: 5 MG
     Route: 065
  9. AMIODARONE HYDROCHLORIDE [Concomitant]
     Indication: ATRIAL FIBRILLATION
     Dosage: 200 MG
     Route: 065

REACTIONS (2)
  - ARTERIAL OCCLUSIVE DISEASE [None]
  - DRUG EFFECT DECREASED [None]
